FAERS Safety Report 21584751 (Version 1)
Quarter: 2022Q4

REPORT INFORMATION
  Report Type: Spontaneous
  Country: CN (occurrence: CN)
  Receive Date: 20221111
  Receipt Date: 20221111
  Transmission Date: 20230113
  Serious: Yes (Hospitalization, Other)
  Sender: FDA-Public Use
  Company Number: CN-009507513-2211CHN001665

PATIENT
  Age: 64 Year
  Sex: Female

DRUGS (2)
  1. PEMBROLIZUMAB [Suspect]
     Active Substance: PEMBROLIZUMAB
     Indication: Cholangiocarcinoma
     Dosage: 5 CYCLES
     Dates: start: 20210816, end: 20211108
  2. ALBUMIN HUMAN;PACLITAXEL [Concomitant]
     Indication: Cholangiocarcinoma
     Dosage: 5 CYCLES
     Dates: start: 20210816, end: 20211108

REACTIONS (2)
  - Immune-mediated hepatic disorder [Recovered/Resolved]
  - Product use in unapproved indication [Unknown]

NARRATIVE: CASE EVENT DATE: 20210816
